FAERS Safety Report 8282170-0 (Version None)
Quarter: 2012Q2

REPORT INFORMATION
  Report Type: 
  Country: None (occurrence: None)
  Receive Date: 20120413
  Receipt Date: 20120409
  Transmission Date: 20120825
  Serious: Yes (Death, Hospitalization)
  Sender: FDA-Public Use
  Company Number: PHEH2011US06242

PATIENT
  Sex: Male

DRUGS (2)
  1. EXJADE [Suspect]
     Indication: NEOPLASM
     Dosage: 2500 MG, QD
     Route: 048
     Dates: start: 20100326
  2. EXJADE [Suspect]
     Dosage: UNK UKN, UNK
     Route: 048
     Dates: start: 20110101, end: 20110901

REACTIONS (3)
  - MYELODYSPLASTIC SYNDROME [None]
  - FEBRILE NEUTROPENIA [None]
  - DRUG INEFFECTIVE [None]
